FAERS Safety Report 8934585 (Version 1)
Quarter: 2012Q4

REPORT INFORMATION
  Report Type: 
  Country: NL (occurrence: NL)
  Receive Date: 20121129
  Receipt Date: 20121129
  Transmission Date: 20130627
  Serious: Yes (Other)
  Sender: FDA-Public Use
  Company Number: NL-PFIZER INC-2012297302

PATIENT
  Sex: Female

DRUGS (2)
  1. EFEXOR [Suspect]
     Dosage: 112 mg, 1x/day
  2. EFEXOR [Suspect]
     Dosage: 50 mg, 1x/day

REACTIONS (1)
  - Drug dependence [Unknown]
